FAERS Safety Report 6974527-2 (Version None)
Quarter: 2010Q3

REPORT INFORMATION
  Report Type: 
  Country: None (occurrence: None)
  Receive Date: 20100909
  Receipt Date: 20080930
  Transmission Date: 20110219
  Serious: No
  Sender: FDA-Public Use
  Company Number: US-WYE-H06183608

PATIENT
  Sex: Female

DRUGS (1)
  1. PROTONIX [Suspect]
     Indication: OESOPHAGITIS
     Route: 048
     Dates: start: 20080920

REACTIONS (2)
  - ABDOMINAL DISTENSION [None]
  - NAUSEA [None]
